FAERS Safety Report 10370614 (Version 1)
Quarter: 2014Q1

REPORT INFORMATION
  Report Type: Spontaneous
  Country: US (occurrence: None)
  Receive Date: 20140306
  Receipt Date: 20140306
  Transmission Date: 20141002
  Serious: Yes (Other)
  Sender: FDA-Public Use
  Company Number: 163-21880-13011087

PATIENT
  Age: 60 Year
  Sex: Female

DRUGS (15)
  1. REVLIMID (LENALIDOMIDE) (CAPSULES) [Suspect]
     Indication: MYELODYSPLASTIC SYNDROME
     Dosage: 5 MG, 21 IN 28 D, PO
     Route: 048
     Dates: start: 20090122, end: 20121005
  2. LORAZEPAM (LORAZEPAM) (DROPS) [Concomitant]
  3. MORPHINE (MORPHINE) (UNKNOWN) (MORPHINE) [Concomitant]
  4. FENTANYL (FENTANYL) (POULTICE OR PATCH) [Concomitant]
  5. PAROXETINE (PAROXETINE) (TABLETS) [Concomitant]
  6. PREDNISONE (PREDNISONE) (TABLETS) [Concomitant]
  7. ONDANSETRON (ONDANSETRON) (TABLETS) [Concomitant]
  8. SULFAMETH/TRIMETHOPRIM (BACTRIM) (UNKNOWN) [Concomitant]
  9. GABAPENTIN (GABAPENTIN) (TABLETS) [Concomitant]
  10. LEVOXYL (LEVOTHYROXINE SODIUM) (TABLETS) [Concomitant]
  11. PRILOSEC (OMEPRAZOLE) (CAPSULES) [Concomitant]
  12. ACTONEL (RISEDRONATE SODIUM) (TABLETS) [Concomitant]
  13. TYLENOL (PARACETAMOL) (CAPSULES) [Concomitant]
  14. CALCIUM +D (OS-CAL) (TABLETS) [Concomitant]
  15. RESTASIS (CICLOSPORIN) (UNKNOWN) [Concomitant]

REACTIONS (3)
  - Pancytopenia [None]
  - Thrombocytopenia [None]
  - Leukopenia [None]
